FAERS Safety Report 17286430 (Version 1)
Quarter: 2020Q1

REPORT INFORMATION
  Report Type: Other
  Country: None (occurrence: SE)
  Receive Date: 20200118
  Receipt Date: 20200118
  Transmission Date: 20200409
  Serious: Yes (Other)
  Sender: FDA-Public Use
  Company Number: SE-ALSI-202000014

PATIENT
  Age: 28 Year
  Sex: Female

DRUGS (1)
  1. NITROUS OXIDE. [Suspect]
     Active Substance: NITROUS OXIDE
     Indication: ACCIDENTAL EXPOSURE TO PRODUCT

REACTIONS (4)
  - Premature labour [Unknown]
  - Device leakage [Unknown]
  - Maternal exposure during pregnancy [Unknown]
  - Occupational exposure to product [Unknown]
